FAERS Safety Report 24308645 (Version 2)
Quarter: 2025Q1

REPORT INFORMATION
  Report Type: Spontaneous
  Country: US (occurrence: US)
  Receive Date: 20240911
  Receipt Date: 20250206
  Transmission Date: 20250408
  Serious: Yes (Other)
  Sender: VERTEX
  Company Number: US-VERTEX PHARMACEUTICALS-2024-014275

PATIENT
  Age: 6 Year
  Sex: Male

DRUGS (2)
  1. TRIKAFTA [Suspect]
     Active Substance: ELEXACAFTOR\IVACAFTOR\TEZACAFTOR
     Indication: Cystic fibrosis
     Route: 048
  2. TRIKAFTA [Suspect]
     Active Substance: ELEXACAFTOR\IVACAFTOR\TEZACAFTOR
     Route: 048

REACTIONS (2)
  - Suicidal ideation [Not Recovered/Not Resolved]
  - Self-injurious ideation [Not Recovered/Not Resolved]
